FAERS Safety Report 20264261 (Version 1)
Quarter: 2021Q4

REPORT INFORMATION
  Report Type: Spontaneous
  Country: US (occurrence: US)
  Receive Date: 20211231
  Receipt Date: 20211231
  Transmission Date: 20220303
  Serious: No
  Sender: FDA-Public Use
  Company Number: US-SA-SAC20211228000413

PATIENT
  Age: 65 Year
  Sex: Female

DRUGS (1)
  1. DUPIXENT [Suspect]
     Active Substance: DUPILUMAB
     Indication: Asthma
     Dosage: 300 MG, QOW
     Route: 058
     Dates: start: 202109, end: 202112

REACTIONS (6)
  - Blepharitis [Unknown]
  - Skin exfoliation [Unknown]
  - Erythema [Unknown]
  - Eczema [Unknown]
  - Alopecia [Unknown]
  - Eye swelling [Unknown]
